FAERS Safety Report 6570752-3 (Version None)
Quarter: 2010Q1

REPORT INFORMATION
  Report Type: 
  Country: None (occurrence: None)
  Receive Date: 20100204
  Receipt Date: 20100126
  Transmission Date: 20100710
  Serious: Yes (Hospitalization, Other)
  Sender: FDA-Public Use
  Company Number: ZA-SANOFI-AVENTIS-2010SA005146

PATIENT
  Age: 67 Year
  Sex: Female

DRUGS (3)
  1. STILNOX [Suspect]
     Indication: DRUG USE FOR UNKNOWN INDICATION
     Route: 065
  2. LYRICA [Concomitant]
     Indication: DRUG USE FOR UNKNOWN INDICATION
     Route: 065
  3. TRAMADOL HCL [Concomitant]
     Indication: DRUG USE FOR UNKNOWN INDICATION
     Route: 065

REACTIONS (7)
  - AMNESIA [None]
  - CONFUSIONAL STATE [None]
  - DRUG ABUSE [None]
  - DRUG DEPENDENCE [None]
  - FALL [None]
  - INJURY [None]
  - LACERATION [None]
